FAERS Safety Report 11701046 (Version 1)
Quarter: 2015Q4

REPORT INFORMATION
  Report Type: Spontaneous
  Country: FR (occurrence: FR)
  Receive Date: 20151105
  Receipt Date: 20151105
  Transmission Date: 20160304
  Serious: Yes (Other)
  Sender: FDA-Public Use
  Company Number: FR-ASTRAZENECA-2015SF06479

PATIENT
  Age: 828 Month
  Sex: Male

DRUGS (6)
  1. PERMIXON [Concomitant]
     Active Substance: SAW PALMETTO
     Route: 048
  2. HYTACAND [Suspect]
     Active Substance: CANDESARTAN CILEXETIL\HYDROCHLOROTHIAZIDE
     Indication: HYPERTENSION
     Route: 048
     Dates: start: 201106, end: 201107
  3. ENTOCORT [Concomitant]
     Active Substance: BUDESONIDE
     Route: 048
     Dates: start: 201107, end: 20120127
  4. COVERAM [Concomitant]
     Active Substance: AMLODIPINE\PERINDOPRIL
     Dosage: DAILY
     Route: 048
     Dates: start: 20111206, end: 20111220
  5. AVODART [Concomitant]
     Active Substance: DUTASTERIDE
     Route: 048
  6. ALLOPURINOL. [Concomitant]
     Active Substance: ALLOPURINOL
     Route: 048

REACTIONS (2)
  - Diarrhoea [Recovered/Resolved]
  - Abdominal pain [Recovered/Resolved]

NARRATIVE: CASE EVENT DATE: 201106
